FAERS Safety Report 8034072-2 (Version None)
Quarter: 2012Q1

REPORT INFORMATION
  Report Type: 
  Country: None (occurrence: None)
  Receive Date: 20120110
  Receipt Date: 20120108
  Transmission Date: 20120608
  Serious: No
  Sender: FDA-Public Use
  Company Number: US-BAYER-2012-002855

PATIENT

DRUGS (1)
  1. ALEVE (CAPLET) [Suspect]
     Dosage: 2, USED ONLY ONE TIME
     Route: 048
     Dates: start: 20120108

REACTIONS (1)
  - MUSCULOSKELETAL PAIN [None]
